FAERS Safety Report 7303897-0 (Version None)
Quarter: 2011Q1

REPORT INFORMATION
  Report Type: 
  Country: None (occurrence: None)
  Receive Date: 20110221
  Receipt Date: 20110214
  Transmission Date: 20110831
  Serious: Yes (Other)
  Sender: FDA-Public Use
  Company Number: B0701018A

PATIENT
  Age: 51 Year
  Sex: Female

DRUGS (1)
  1. LAMICTAL [Suspect]
     Route: 065

REACTIONS (4)
  - HEADACHE [None]
  - MYALGIA [None]
  - MUSCLE SPASMS [None]
  - PYREXIA [None]
